FAERS Safety Report 21967250 (Version 1)
Quarter: 2023Q1

REPORT INFORMATION
  Report Type: Spontaneous
  Country: US (occurrence: US)
  Receive Date: 20230208
  Receipt Date: 20230208
  Transmission Date: 20230417
  Serious: No
  Sender: FDA-Public Use
  Company Number: US-JNJFOC-20230207252

PATIENT
  Sex: Female

DRUGS (2)
  1. TYLENOL 8HR [Suspect]
     Active Substance: ACETAMINOPHEN
     Indication: Musculoskeletal disorder
     Route: 065
     Dates: start: 202301
  2. TYLENOL 8HR [Suspect]
     Active Substance: ACETAMINOPHEN
     Indication: Groin pain

REACTIONS (2)
  - Nausea [Recovered/Resolved]
  - Drug ineffective [Unknown]

NARRATIVE: CASE EVENT DATE: 20230101
